FAERS Safety Report 6087606-1 (Version None)
Quarter: 2009Q1

REPORT INFORMATION
  Report Type: 
  Country: None (occurrence: None)
  Receive Date: 20090223
  Receipt Date: 20090212
  Transmission Date: 20090719
  Serious: Yes (Hospitalization)
  Sender: FDA-Public Use
  Company Number: JP-PFIZER INC-2009172697

PATIENT

DRUGS (6)
  1. ATORVASTATIN CALCIUM [Suspect]
     Dosage: 20 MG, UNKNOWN/D
     Route: 048
     Dates: start: 20080130, end: 20080216
  2. INSULIN HUMAN INJECTION, ISOPHANE [Concomitant]
  3. PROCYLIN [Concomitant]
  4. DIPYRIDAMOLE [Concomitant]
  5. STOMACHIC MIXTURE /THA/ [Concomitant]
  6. INSULIN [Concomitant]
     Dosage: UNK

REACTIONS (10)
  - CHEST DISCOMFORT [None]
  - DIARRHOEA [None]
  - HEADACHE [None]
  - HYPERHIDROSIS [None]
  - MUSCULAR WEAKNESS [None]
  - MUSCULOSKELETAL STIFFNESS [None]
  - OEDEMA PERIPHERAL [None]
  - ONYCHOMADESIS [None]
  - PAIN [None]
  - PYREXIA [None]
